FAERS Safety Report 4655313-5 (Version None)
Quarter: 2005Q2

REPORT INFORMATION
  Report Type: 
  Country: None (occurrence: None)
  Receive Date: 20050505
  Receipt Date: 20050418
  Transmission Date: 20051028
  Serious: Yes (Hospitalization)
  Sender: FDA-Public Use
  Company Number: USA050495928

PATIENT
  Age: 73 Year
  Sex: Female

DRUGS (1)
  1. PROZAC [Suspect]
     Indication: DEPRESSION

REACTIONS (2)
  - ABNORMAL BEHAVIOUR [None]
  - FEELING ABNORMAL [None]
